FAERS Safety Report 4801083-7 (Version None)
Quarter: 2005Q4

REPORT INFORMATION
  Report Type: 
  Country: None (occurrence: None)
  Receive Date: 20051011
  Receipt Date: 20050930
  Transmission Date: 20060501
  Serious: Yes (Hospitalization, Other)
  Sender: FDA-Public Use
  Company Number: HQWYE396012SEP05

PATIENT
  Age: 37 Year
  Sex: Male

DRUGS (8)
  1. RAPAMUNE [Suspect]
     Indication: PROPHYLAXIS AGAINST TRANSPLANT REJECTION
     Dosage: 3 MG 1X PER 1 DAY, ORAL
     Route: 048
     Dates: start: 20050829
  2. MYCOPHENOLATE MOFETIL (MYCOPHENOLATE MOFETIL) [Concomitant]
  3. RANITIDINE [Concomitant]
  4. GANCICLOVIR SODIUM [Concomitant]
  5. SULFAMETHOXAZOLE + TRIMETHOPRIM [Concomitant]
  6. FERRIC HYDROXIDE COLLOIDAL (FERRIC HYDROXINE COLLOIDAL) [Concomitant]
  7. FOLIC ACID [Concomitant]
  8. ARANESP [Concomitant]

REACTIONS (5)
  - DRUG INEFFECTIVE [None]
  - DRUG LEVEL FLUCTUATING [None]
  - HYPERCALCAEMIA [None]
  - HYPOCALCAEMIA [None]
  - KIDNEY TRANSPLANT REJECTION [None]
